FAERS Safety Report 10253553 (Version 1)
Quarter: 2014Q2

REPORT INFORMATION
  Report Type: Spontaneous
  Country: US (occurrence: US)
  Receive Date: 20140623
  Receipt Date: 20140623
  Transmission Date: 20141212
  Serious: No
  Sender: FDA-Public Use
  Company Number: US-ZOGENIX, INC.-2011ZX000501

PATIENT
  Sex: Female
  Weight: 77.18 kg

DRUGS (5)
  1. SUMAVEL DOSEPRO [Suspect]
     Indication: MIGRAINE
  2. ZOMIG [Concomitant]
     Indication: PRODUCT USED FOR UNKNOWN INDICATION
  3. TOPAMAX [Concomitant]
     Indication: HEADACHE
     Route: 048
  4. TEGRETOL [Concomitant]
     Indication: TRIGEMINAL NEURALGIA
  5. NEURONTIN [Concomitant]
     Indication: PAIN

REACTIONS (2)
  - Injection site extravasation [Recovered/Resolved]
  - Injection site urticaria [Recovered/Resolved]
